FAERS Safety Report 7524450-X (Version None)
Quarter: 2011Q2

REPORT INFORMATION
  Report Type: 
  Country: None (occurrence: None)
  Receive Date: 20110601
  Receipt Date: 20110601
  Transmission Date: 20111010
  Serious: Yes (Other)
  Sender: FDA-Public Use
  Company Number: None

PATIENT
  Sex: Female

DRUGS (1)
  1. GILENYA [Suspect]
     Indication: MULTIPLE SCLEROSIS
     Dosage: 0.5MG -1CAPSULE- DAILY PO
     Route: 048

REACTIONS (3)
  - SENSATION OF FOREIGN BODY [None]
  - NAUSEA [None]
  - PALPITATIONS [None]
